FAERS Safety Report 9974878 (Version 1)
Quarter: 2014Q1

REPORT INFORMATION
  Report Type: Report from Study
  Country: US (occurrence: US)
  Receive Date: 20140306
  Receipt Date: 20140306
  Transmission Date: 20141002
  Serious: No
  Sender: FDA-Public Use
  Company Number: US-ABBVIE-13P-163-1160711-00

PATIENT
  Age: 56 Year
  Sex: Female

DRUGS (3)
  1. HUMIRA [Suspect]
     Indication: CROHN^S DISEASE
     Dates: start: 20131017, end: 20131017
  2. HUMIRA [Suspect]
  3. ANTIDEPRESSANTS [Concomitant]
     Indication: PRODUCT USED FOR UNKNOWN INDICATION
     Dosage: EVERY DAY

REACTIONS (7)
  - Gait disturbance [Unknown]
  - Pain [Unknown]
  - Muscular weakness [Unknown]
  - Mobility decreased [Unknown]
  - Swelling [Unknown]
  - Malaise [Unknown]
  - Diarrhoea [Unknown]
